FAERS Safety Report 24811773 (Version 1)
Quarter: 2025Q1

REPORT INFORMATION
  Report Type: Spontaneous
  Country: US (occurrence: US)
  Receive Date: 20250106
  Receipt Date: 20250106
  Transmission Date: 20250408
  Serious: No
  Sender: TEIKOKU
  Company Number: US-TPU-TPU-2024-00629

PATIENT
  Sex: Female

DRUGS (1)
  1. LIDOCAINE PATCH [Suspect]
     Active Substance: LIDOCAINE
     Indication: Post-traumatic neck syndrome
     Dates: start: 20241206

REACTIONS (3)
  - Inappropriate schedule of product administration [Unknown]
  - Pain [Unknown]
  - Respiratory tract congestion [Unknown]
